FAERS Safety Report 4513422-5 (Version None)
Quarter: 2004Q4

REPORT INFORMATION
  Report Type: 
  Country: None (occurrence: None)
  Receive Date: 20041130
  Receipt Date: 20040928
  Transmission Date: 20050328
  Serious: Yes (Other)
  Sender: FDA-Public Use
  Company Number: US-BRISTOL-MYERS SQUIBB COMPANY-12715512

PATIENT
  Age: 42 Year
  Sex: Male
  Weight: 102 kg

DRUGS (4)
  1. ERBITUX [Suspect]
     Indication: COLON CANCER METASTATIC
     Dosage: REC'D 3 CYCLES, 3RD CYCLE GIVEN ON 16-SEP-04
     Route: 042
  2. PREDNISONE TAB [Suspect]
     Indication: RASH
  3. LORTAB [Concomitant]
  4. MS CONTIN [Concomitant]

REACTIONS (1)
  - RASH PRURITIC [None]
